FAERS Safety Report 8392285-4 (Version None)
Quarter: 2012Q2

REPORT INFORMATION
  Report Type: 
  Country: None (occurrence: None)
  Receive Date: 20120529
  Receipt Date: 20120514
  Transmission Date: 20120825
  Serious: Yes (Death, Life-Threatening, Hospitalization)
  Sender: FDA-Public Use
  Company Number: US-ROCHE-910200372001

PATIENT
  Age: 52 Year
  Sex: Female

DRUGS (1)
  1. ROCEPHIN [Suspect]
     Indication: CELLULITIS
     Route: 042
     Dates: start: 19871109, end: 19871113

REACTIONS (6)
  - MUSCLE SPASMS [None]
  - HAEMOLYTIC ANAEMIA [None]
  - RESPIRATORY DISTRESS [None]
  - FATIGUE [None]
  - CARDIO-RESPIRATORY ARREST [None]
  - ASTHENIA [None]
